FAERS Safety Report 18658284 (Version 1)
Quarter: 2020Q4

REPORT INFORMATION
  Report Type: Spontaneous
  Country: US (occurrence: US)
  Receive Date: 20201223
  Receipt Date: 20201223
  Transmission Date: 20210114
  Serious: No
  Sender: FDA-Public Use
  Company Number: US-PFIZER INC-2020506258

PATIENT
  Age: 61 Year
  Sex: Male
  Weight: 113.4 kg

DRUGS (1)
  1. SPIRONOLACTONE. [Suspect]
     Active Substance: SPIRONOLACTONE
     Dosage: 25 MG, DAILY (25MG BY PILL DAILY)
     Dates: start: 201505, end: 201602

REACTIONS (1)
  - Nipple pain [Recovered/Resolved]
